FAERS Safety Report 9837747 (Version 2)
Quarter: 2019Q4

REPORT INFORMATION
  Report Type: Spontaneous
  Country: US (occurrence: US)
  Receive Date: 20140123
  Receipt Date: 20191219
  Transmission Date: 20200122
  Serious: Yes (Other)
  Sender: FDA-Public Use
  Company Number: US-UCBSA-109063

PATIENT

DRUGS (3)
  1. CIMZIA [Suspect]
     Active Substance: CERTOLIZUMAB PEGOL
     Indication: CROHN^S DISEASE
     Dosage: DOSE UNKNOWN
  2. REMICADE [Concomitant]
     Active Substance: INFLIXIMAB
  3. PREDNISONE. [Concomitant]
     Active Substance: PREDNISONE
     Dosage: DOSE UNKNOWN

REACTIONS (6)
  - Psoriasis [Unknown]
  - Arthralgia [Unknown]
  - Hypersensitivity [Unknown]
  - Intestinal obstruction [Unknown]
  - Ileal stenosis [Unknown]
  - Drug ineffective [Unknown]
